FAERS Safety Report 10605414 (Version 1)
Quarter: 2014Q4

REPORT INFORMATION
  Report Type: Report from Study
  Country: NL (occurrence: NL)
  Receive Date: 20141124
  Receipt Date: 20141124
  Transmission Date: 20150529
  Serious: Yes (Hospitalization, Other)
  Sender: FDA-Public Use
  Company Number: NL-AMGEN-NLDSL2012086815

PATIENT
  Age: 37 Year
  Sex: Female

DRUGS (1)
  1. NEULASTA [Suspect]
     Active Substance: PEGFILGRASTIM
     Indication: PRODUCT USED FOR UNKNOWN INDICATION
     Dosage: 6 MG, Q2WK
     Route: 065

REACTIONS (9)
  - Gastroenteritis [Unknown]
  - Neoplasm [Unknown]
  - Attention deficit/hyperactivity disorder [Unknown]
  - Myalgia [Unknown]
  - Hyperhidrosis [Unknown]
  - Fatigue [Unknown]
  - Heart rate increased [Unknown]
  - Bone marrow disorder [Unknown]
  - Asthenia [Unknown]
